FAERS Safety Report 5719946-7 (Version None)
Quarter: 2008Q2

REPORT INFORMATION
  Report Type: 
  Country: None (occurrence: None)
  Receive Date: 20080424
  Receipt Date: 20080415
  Transmission Date: 20081010
  Serious: Yes (Other)
  Sender: FDA-Public Use
  Company Number: B0517514A

PATIENT
  Age: 14 Year
  Sex: Female

DRUGS (3)
  1. LAMIVUDINE [Suspect]
     Indication: HIV INFECTION
  2. STAVUDINE [Suspect]
     Indication: HIV INFECTION
  3. NEVIRAPINE [Suspect]
     Indication: HIV INFECTION

REACTIONS (8)
  - CARDIOMEGALY [None]
  - CONGESTIVE CARDIOMYOPATHY [None]
  - GALLOP RHYTHM PRESENT [None]
  - HEPATOMEGALY [None]
  - IMMUNE RECONSTITUTION SYNDROME [None]
  - LEFT VENTRICULAR DYSFUNCTION [None]
  - PULMONARY CONGESTION [None]
  - TACHYCARDIA [None]
